FAERS Safety Report 5288408-6 (Version None)
Quarter: 2007Q2

REPORT INFORMATION
  Report Type: 
  Country: None (occurrence: None)
  Receive Date: 20070405
  Receipt Date: 20070402
  Transmission Date: 20071010
  Serious: Yes (Disabling)
  Sender: FDA-Public Use
  Company Number: JP-BRISTOL-MYERS SQUIBB COMPANY-13735071

PATIENT
  Age: 64 Year
  Sex: Male

DRUGS (4)
  1. FLUDECASIN [Suspect]
     Indication: SCHIZOPHRENIA
     Route: 030
     Dates: start: 20060829, end: 20070116
  2. LULLAN [Suspect]
     Indication: SCHIZOPHRENIA
     Route: 048
     Dates: start: 20061128, end: 20070123
  3. VEGETAMIN A [Concomitant]
     Dates: start: 20051101
  4. SYMMETREL [Concomitant]
     Dates: start: 20061212

REACTIONS (1)
  - TREMOR [None]
